FAERS Safety Report 13175601 (Version 1)
Quarter: 2017Q1

REPORT INFORMATION
  Report Type: Spontaneous
  Country: US (occurrence: US)
  Receive Date: 20170131
  Receipt Date: 20170131
  Transmission Date: 20170428
  Serious: Yes (Other)
  Sender: FDA-Public Use
  Company Number: None

PATIENT
  Age: 49 Year
  Sex: Male
  Weight: 92.2 kg

DRUGS (2)
  1. MULTI VITAMINS [Concomitant]
     Active Substance: VITAMINS
  2. CETIRIZINE HYDROCHLORIDE 10MG [Suspect]
     Active Substance: CETIRIZINE HYDROCHLORIDE
     Indication: MULTIPLE ALLERGIES
     Dosage: ?          QUANTITY:365 TABLET(S);?
     Route: 048

REACTIONS (3)
  - Withdrawal syndrome [None]
  - Drug hypersensitivity [None]
  - Nasopharyngitis [None]

NARRATIVE: CASE EVENT DATE: 20170125
